FAERS Safety Report 25889719 (Version 1)
Quarter: 2025Q4

REPORT INFORMATION
  Report Type: Report from Study
  Country: US (occurrence: US)
  Receive Date: 20251007
  Receipt Date: 20251007
  Transmission Date: 20260117
  Serious: Yes (Other)
  Sender: ABBVIE
  Company Number: US-ABBVIE-6488776

PATIENT
  Sex: Female

DRUGS (1)
  1. SKYRIZI [Suspect]
     Active Substance: RISANKIZUMAB-RZAA
     Indication: Psoriasis
     Route: 058
     Dates: start: 20250120

REACTIONS (7)
  - Tooth extraction [Unknown]
  - Oral pain [Not Recovered/Not Resolved]
  - Contusion [Unknown]
  - Oral contusion [Unknown]
  - Suture related complication [Unknown]
  - Eye contusion [Unknown]
  - Post procedural oedema [Unknown]
